FAERS Safety Report 8903709 (Version 1)
Quarter: 2012Q4

REPORT INFORMATION
  Report Type: 
  Country: DE (occurrence: DE)
  Receive Date: 20121112
  Receipt Date: 20121112
  Transmission Date: 20130627
  Serious: Yes (Death)
  Sender: FDA-Public Use
  Company Number: PHHY2012DE103639

PATIENT
  Age: 65 Year
  Sex: Male

DRUGS (6)
  1. CICLOSPORIN [Suspect]
     Indication: PROPHYLAXIS AGAINST GRAFT VERSUS HOST DISEASE
  2. MYCOPHENOLATE MOFETIL [Concomitant]
     Indication: PROPHYLAXIS AGAINST GRAFT VERSUS HOST DISEASE
  3. ANTITHYMOCYTE IMMUNOGLOBULIN [Concomitant]
     Indication: PROPHYLAXIS AGAINST GRAFT VERSUS HOST DISEASE
  4. FLUDARABINE [Concomitant]
     Indication: SURGICAL PRECONDITIONING
  5. BISCHLOROETHYLNITROSOUREA [Concomitant]
     Indication: SURGICAL PRECONDITIONING
  6. MELPHALAN [Concomitant]
     Indication: SURGICAL PRECONDITIONING

REACTIONS (2)
  - Cardiac failure [Fatal]
  - Renal failure [Fatal]
